FAERS Safety Report 8029703-7 (Version None)
Quarter: 2012Q1

REPORT INFORMATION
  Report Type: 
  Country: None (occurrence: None)
  Receive Date: 20120109
  Receipt Date: 20120109
  Transmission Date: 20120608
  Serious: Yes (Hospitalization)
  Sender: FDA-Public Use
  Company Number: ES-PFIZER INC-2011129660

PATIENT
  Age: 51 Year
  Sex: Male
  Weight: 96 kg

DRUGS (7)
  1. DAPTOMYCIN [Concomitant]
     Route: 042
  2. PANTOPRAZOLE [Concomitant]
     Route: 042
  3. MEROPENEM [Concomitant]
     Route: 042
  4. VITAMIN B1 TAB [Concomitant]
     Route: 042
  5. ALBUMIN HUMAN [Concomitant]
     Route: 042
  6. ECALTA [Suspect]
     Indication: INFECTIOUS PERITONITIS
     Dosage: 100 MG, 1X/DAY
     Route: 042
     Dates: start: 20110602, end: 20110603
  7. MORPHINE HYDROCHLORIDE [Concomitant]
     Route: 042

REACTIONS (2)
  - PRURITUS [None]
  - HYPERSENSITIVITY [None]
